FAERS Safety Report 7229648-6 (Version None)
Quarter: 2011Q1

REPORT INFORMATION
  Report Type: 
  Country: None (occurrence: None)
  Receive Date: 20110117
  Receipt Date: 20110107
  Transmission Date: 20110831
  Serious: Yes (Other)
  Sender: FDA-Public Use
  Company Number: PHHY2010CA76968

PATIENT
  Sex: Female

DRUGS (5)
  1. HYDRODIURIL [Concomitant]
     Dosage: 2.5 MG DAILY
  2. MAVIK [Concomitant]
     Dosage: 20 MG
  3. EXELON [Suspect]
     Dosage: 10 MG, UNK
     Route: 062
     Dates: start: 20090422, end: 20100730
  4. SYNTHROID [Concomitant]
     Dosage: 0.005 MG
  5. ALPRAZOLAM [Concomitant]
     Dosage: 0.25 MG BID PRN

REACTIONS (2)
  - BUNDLE BRANCH BLOCK LEFT [None]
  - DYSPNOEA [None]
